FAERS Safety Report 7099692-0 (Version None)
Quarter: 2010Q4

REPORT INFORMATION
  Report Type: 
  Country: None (occurrence: None)
  Receive Date: 20101112
  Receipt Date: 20101109
  Transmission Date: 20110411
  Serious: Yes (Life-Threatening)
  Sender: FDA-Public Use
  Company Number: GB-SANOFI-AVENTIS-2010SA068317

PATIENT
  Age: 66 Year
  Sex: Male
  Weight: 66 kg

DRUGS (6)
  1. DOCETAXEL [Suspect]
     Indication: PROSTATE CANCER
     Route: 041
     Dates: start: 20101020, end: 20101020
  2. AMITRIPTYLINE HCL [Concomitant]
  3. DEXAMETHASONE [Concomitant]
  4. DICLOFENAC SODIUM [Concomitant]
  5. MORPHINE SULFATE [Concomitant]
  6. PREDNISOLONE [Concomitant]

REACTIONS (2)
  - CHEST PAIN [None]
  - PORPHYRIA ACUTE [None]
